FAERS Safety Report 18549264 (Version 2)
Quarter: 2020Q4

REPORT INFORMATION
  Report Type: Spontaneous
  Country: AU (occurrence: AU)
  Receive Date: 20201126
  Receipt Date: 20201213
  Transmission Date: 20210114
  Serious: Yes (Other)
  Sender: FDA-Public Use
  Company Number: AU-JNJFOC-20201133788

PATIENT
  Age: 64 Year
  Sex: Female

DRUGS (26)
  1. RISPERDAL [Suspect]
     Active Substance: RISPERIDONE
     Indication: SCHIZOPHRENIA
     Route: 065
  2. AMISULPRIDE [Concomitant]
     Active Substance: AMISULPRIDE
  3. CLOZARIL [Suspect]
     Active Substance: CLOZAPINE
     Indication: SCHIZOAFFECTIVE DISORDER
     Route: 065
  4. FENOFIBRATE. [Suspect]
     Active Substance: FENOFIBRATE
     Indication: BLOOD CHOLESTEROL INCREASED
     Route: 065
  5. LITHIUM. [Suspect]
     Active Substance: LITHIUM
     Route: 048
     Dates: start: 201908
  6. PANTOPRAZOLE [Suspect]
     Active Substance: PANTOPRAZOLE
     Indication: GASTROOESOPHAGEAL REFLUX DISEASE
     Route: 065
  7. ARIPIPRAZOLE. [Concomitant]
     Active Substance: ARIPIPRAZOLE
  8. CHLORPROMAZINE HYDROCHLORIDE. [Suspect]
     Active Substance: CHLORPROMAZINE HYDROCHLORIDE
     Indication: AGITATION
  9. DONEPEZIL. [Concomitant]
     Active Substance: DONEPEZIL
  10. RISPERDAL [Suspect]
     Active Substance: RISPERIDONE
     Route: 065
  11. RISPERDAL [Suspect]
     Active Substance: RISPERIDONE
     Route: 065
  12. CHLORPROMAZINE HYDROCHLORIDE. [Suspect]
     Active Substance: CHLORPROMAZINE HYDROCHLORIDE
     Indication: BEHAVIOUR DISORDER
     Route: 065
  13. CLOZARIL [Suspect]
     Active Substance: CLOZAPINE
     Route: 065
  14. CLOZARIL [Suspect]
     Active Substance: CLOZAPINE
     Route: 065
  15. SODIUM VALPROATE [Suspect]
     Active Substance: VALPROATE SODIUM
     Route: 065
  16. SODIUM VALPROATE [Suspect]
     Active Substance: VALPROATE SODIUM
     Route: 065
  17. LITHIUM. [Suspect]
     Active Substance: LITHIUM
     Indication: PRODUCT USED FOR UNKNOWN INDICATION
     Route: 048
  18. SODIUM VALPROATE [Suspect]
     Active Substance: VALPROATE SODIUM
     Indication: AFFECTIVE DISORDER
     Route: 065
  19. SODIUM VALPROATE [Suspect]
     Active Substance: VALPROATE SODIUM
     Route: 065
  20. PARACETAMOL [Suspect]
     Active Substance: ACETAMINOPHEN
     Indication: PAIN
     Route: 065
  21. LITHIUM. [Suspect]
     Active Substance: LITHIUM
     Route: 048
  22. METFORMIN HCL [Concomitant]
     Active Substance: METFORMIN HYDROCHLORIDE
  23. ZUCLOPENTHIXOL [Concomitant]
     Active Substance: ZUCLOPENTHIXOL
     Dates: start: 20181012
  24. LITHIUM. [Suspect]
     Active Substance: LITHIUM
     Route: 048
     Dates: start: 201908
  25. CLOZARIL [Suspect]
     Active Substance: CLOZAPINE
     Indication: SCHIZOPHRENIA
     Route: 065
     Dates: start: 20190104
  26. CLOZARIL [Suspect]
     Active Substance: CLOZAPINE
     Route: 065
     Dates: end: 20200221

REACTIONS (17)
  - Hallucination [Unknown]
  - Hypotension [Unknown]
  - Peritonitis bacterial [Unknown]
  - Tremor [Unknown]
  - Headache [Unknown]
  - Neutropenia [Unknown]
  - Psychotic disorder [Unknown]
  - Mania [Unknown]
  - Leukopenia [Unknown]
  - Ataxia [Unknown]
  - Delusion [Not Recovered/Not Resolved]
  - Confusional state [Unknown]
  - Urinary tract infection [Unknown]
  - Grandiosity [Unknown]
  - Aggression [Recovering/Resolving]
  - Diarrhoea [Unknown]
  - Malaise [Unknown]

NARRATIVE: CASE EVENT DATE: 2012
